FAERS Safety Report 13807843 (Version 1)
Quarter: 2017Q3

REPORT INFORMATION
  Report Type: Report from Study
  Country: DE (occurrence: DE)
  Receive Date: 20170728
  Receipt Date: 20170728
  Transmission Date: 20171127
  Serious: Yes (Other)
  Sender: FDA-Public Use
  Company Number: DE-TEVA-790115GER

PATIENT
  Age: 9 Year

DRUGS (2)
  1. TRETINOIN. [Suspect]
     Active Substance: TRETINOIN
     Indication: ACUTE PROMYELOCYTIC LEUKAEMIA
     Dosage: 25MG/M2/DAY FOR 14 DAYS WITH ONE WEEK GAP
     Route: 065
  2. ARSENIC TRIOXIDE [Suspect]
     Active Substance: ARSENIC TRIOXIDE
     Indication: ACUTE PROMYELOCYTIC LEUKAEMIA
     Dosage: 0.15 MG/KG/DAY
     Route: 065

REACTIONS (4)
  - VIth nerve paresis [Recovered/Resolved]
  - Diplopia [Recovered/Resolved]
  - Papilloedema [Recovered/Resolved]
  - Hyperleukocytosis [Recovered/Resolved]
